FAERS Safety Report 24330430 (Version 3)
Quarter: 2024Q4

REPORT INFORMATION
  Report Type: Spontaneous
  Country: US (occurrence: US)
  Receive Date: 20240918
  Receipt Date: 20241009
  Transmission Date: 20250114
  Serious: No
  Sender: SANOFI AVENTIS
  Company Number: US-SANOFI-02209423

PATIENT
  Age: 63 Year
  Sex: Male

DRUGS (3)
  1. LANTUS [Suspect]
     Active Substance: INSULIN GLARGINE
     Indication: Diabetes mellitus
     Dosage: 2-5 UNITS TID
  2. LANTUS [Suspect]
     Active Substance: INSULIN GLARGINE
     Dosage: 15-20 UNITS QD AND DRUG TREATMENT DURATION:NEW PENS/3 WEEKS
  3. HUMALOG [Concomitant]
     Active Substance: INSULIN LISPRO

REACTIONS (2)
  - Injection site induration [Unknown]
  - Inappropriate schedule of product administration [Unknown]
